FAERS Safety Report 24144840 (Version 2)
Quarter: 2024Q4

REPORT INFORMATION
  Report Type: Spontaneous
  Country: FR (occurrence: FR)
  Receive Date: 20240729
  Receipt Date: 20241104
  Transmission Date: 20250115
  Serious: Yes (Other)
  Sender: TEVA
  Company Number: FR-TEVA-VS-3211178

PATIENT
  Age: 47 Year
  Sex: Female

DRUGS (1)
  1. COPAXONE [Suspect]
     Active Substance: GLATIRAMER ACETATE
     Indication: Multiple sclerosis
     Dosage: DOSAGE: 40 MG/ML
     Route: 065

REACTIONS (9)
  - Injury associated with device [Not Recovered/Not Resolved]
  - Needle issue [Unknown]
  - Injection site induration [Not Recovered/Not Resolved]
  - Haematoma [Unknown]
  - Necrosis [Unknown]
  - Wrong technique in product usage process [Unknown]
  - Pain [Unknown]
  - Ovarian cyst [Unknown]
  - Osteoarthritis [Unknown]

NARRATIVE: CASE EVENT DATE: 20240518
